FAERS Safety Report 6093578-6 (Version None)
Quarter: 2009Q1

REPORT INFORMATION
  Report Type: 
  Country: None (occurrence: None)
  Receive Date: 20090226
  Receipt Date: 20090216
  Transmission Date: 20090719
  Serious: Yes (Other)
  Sender: FDA-Public Use
  Company Number: US-PFIZER INC-2005077827

PATIENT
  Sex: Male
  Weight: 118 kg

DRUGS (4)
  1. VIAGRA [Suspect]
     Indication: ERECTILE DYSFUNCTION
     Route: 048
     Dates: start: 20040101
  2. ALLERGY MEDICATION [Concomitant]
     Route: 065
  3. ANALGESICS [Concomitant]
     Indication: BACK PAIN
  4. OTHER ANTIDIARRHOEALS [Concomitant]
     Indication: DIARRHOEA

REACTIONS (6)
  - BACK DISORDER [None]
  - DRUG INEFFECTIVE [None]
  - ERECTILE DYSFUNCTION [None]
  - EYE DISORDER [None]
  - KNEE ARTHROPLASTY [None]
  - WEIGHT DECREASED [None]
